FAERS Safety Report 8244833-2 (Version None)
Quarter: 2012Q1

REPORT INFORMATION
  Report Type: 
  Country: None (occurrence: None)
  Receive Date: 20120329
  Receipt Date: 20110622
  Transmission Date: 20120608
  Serious: No
  Sender: FDA-Public Use
  Company Number: US-MYLANLABS-2011S1011523

PATIENT
  Age: 42 Year
  Sex: Female

DRUGS (5)
  1. CYMBALTA [Concomitant]
     Route: 048
  2. FENTANYL-100 [Suspect]
     Indication: CRANIOCEREBRAL INJURY
     Dosage: QOD
     Route: 062
     Dates: start: 20110201, end: 20110601
  3. TOPAMAX [Concomitant]
     Route: 048
  4. NEURONTIN [Concomitant]
     Route: 048
  5. FLEXERIL [Concomitant]
     Route: 048

REACTIONS (5)
  - DRUG WITHDRAWAL SYNDROME [None]
  - PARAESTHESIA [None]
  - DRUG EFFECT INCREASED [None]
  - EUPHORIC MOOD [None]
  - HYPOAESTHESIA [None]
